FAERS Safety Report 25243919 (Version 1)
Quarter: 2025Q2

REPORT INFORMATION
  Report Type: Spontaneous
  Country: US (occurrence: US)
  Receive Date: 20250428
  Receipt Date: 20250428
  Transmission Date: 20250716
  Serious: Yes (Other)
  Sender: COOPERSURGICAL
  Company Number: US-COOPERSURGICAL, INC.-2025CPS003172

PATIENT
  Age: 29 Year
  Sex: Female
  Weight: 88.889 kg

DRUGS (1)
  1. PARAGARD T 380A [Suspect]
     Active Substance: COPPER
     Indication: Contraception
     Route: 015
     Dates: start: 20130222

REACTIONS (23)
  - Infertility female [Not Recovered/Not Resolved]
  - High risk pregnancy [Recovered/Resolved]
  - Pelvic organ injury [Not Recovered/Not Resolved]
  - Ectopic pregnancy [Recovered/Resolved]
  - Abortion spontaneous [Unknown]
  - Device breakage [Not Recovered/Not Resolved]
  - Foreign body in reproductive tract [Not Recovered/Not Resolved]
  - Embedded device [Not Recovered/Not Resolved]
  - Pelvic infection [Not Recovered/Not Resolved]
  - Endometritis [Not Recovered/Not Resolved]
  - Uterine infection [Not Recovered/Not Resolved]
  - Anxiety [Not Recovered/Not Resolved]
  - Depression [Not Recovered/Not Resolved]
  - Scar [Not Recovered/Not Resolved]
  - Emotional disorder [Unknown]
  - Platelet count increased [Unknown]
  - Thrombocytosis [Unknown]
  - Anaemia [Unknown]
  - Device expulsion [Recovered/Resolved]
  - Dyspareunia [Not Recovered/Not Resolved]
  - Abnormal uterine bleeding [Not Recovered/Not Resolved]
  - Pain [Not Recovered/Not Resolved]
  - Vaginal infection [Not Recovered/Not Resolved]

NARRATIVE: CASE EVENT DATE: 20140101
